FAERS Safety Report 7030232-8 (Version None)
Quarter: 2010Q4

REPORT INFORMATION
  Report Type: 
  Country: None (occurrence: None)
  Receive Date: 20101006
  Receipt Date: 20100923
  Transmission Date: 20110411
  Serious: Yes (Hospitalization)
  Sender: FDA-Public Use
  Company Number: US-ELI_LILLY_AND_COMPANY-US201008006988

PATIENT
  Age: 81 Year
  Sex: Male

DRUGS (3)
  1. FORTEO [Suspect]
     Indication: OSTEOPOROSIS
     Dosage: 20 UG, DAILY (1/D)
  2. PLAVIX [Concomitant]
     Dosage: UNK, DAILY (1/D)
  3. LIPITOR [Concomitant]
     Dosage: UNK, EACH EVENING

REACTIONS (3)
  - DYSPHAGIA [None]
  - MYOCARDIAL INFARCTION [None]
  - PHARYNGEAL OEDEMA [None]
